FAERS Safety Report 6450895-5 (Version None)
Quarter: 2009Q4

REPORT INFORMATION
  Report Type: 
  Country: None (occurrence: None)
  Receive Date: 20091123
  Receipt Date: 20091110
  Transmission Date: 20100525
  Serious: Yes (Death)
  Sender: FDA-Public Use
  Company Number: US-PFIZER INC-2009259407

PATIENT
  Sex: Male
  Weight: 82.54 kg

DRUGS (9)
  1. REVATIO [Suspect]
     Indication: PULMONARY HYPERTENSION
     Dosage: 20 MG, 3X/DAY
     Dates: start: 20080812
  2. PREDNISONE [Concomitant]
     Dosage: 15 MG, 1X/DAY
  3. LANTUS [Concomitant]
     Dosage: 23 UNK, 1X/DAY IN MORNING
     Route: 058
  4. TAMSULOSIN [Concomitant]
     Dosage: 0.4 MG, 1X/DAY
  5. ASPIRIN [Concomitant]
     Dosage: 81 MG, 1X/DAY
     Route: 048
  6. POTASSIUM [Concomitant]
     Dosage: 20 MEQ, AS NEEDED
  7. LASIX [Concomitant]
     Dosage: 40 MG, AS NEEDED
  8. LIPITOR [Concomitant]
     Dosage: 10 MG, 1X/DAY
     Route: 048
  9. CARDIZEM CD [Concomitant]
     Dosage: 120 MG, 1X/DAY

REACTIONS (2)
  - DISEASE PROGRESSION [None]
  - PULMONARY HYPERTENSION [None]
